FAERS Safety Report 4644400-3 (Version None)
Quarter: 2005Q2

REPORT INFORMATION
  Report Type: 
  Country: None (occurrence: None)
  Receive Date: 20050331
  Receipt Date: 20041210
  Transmission Date: 20051028
  Serious: No
  Sender: FDA-Public Use
  Company Number: 04P-163-0283354-00

PATIENT
  Sex: Female

DRUGS (8)
  1. HUMIRA [Suspect]
     Dosage: 40 MG, SUBCUTANEOUS
     Route: 058
  2. FUROSEMIDE [Suspect]
     Dosage: 200 MG, 1 IN 1 D, PER ORAL; 160 MG, 1 IN 1 D, PER ORAL;  200 MG, 1 IN 1 D, PER ORAL
     Route: 048
     Dates: end: 20041101
  3. FUROSEMIDE [Suspect]
     Dosage: 200 MG, 1 IN 1 D, PER ORAL; 160 MG, 1 IN 1 D, PER ORAL;  200 MG, 1 IN 1 D, PER ORAL
     Route: 048
     Dates: start: 20041101, end: 20041209
  4. FUROSEMIDE [Suspect]
     Dosage: 200 MG, 1 IN 1 D, PER ORAL; 160 MG, 1 IN 1 D, PER ORAL;  200 MG, 1 IN 1 D, PER ORAL
     Route: 048
     Dates: start: 20041209
  5. WARFARIN SODIUM [Concomitant]
  6. SOTOLOL [Concomitant]
  7. LOSARTAN POTASSIUM [Concomitant]
  8. INSPAR [Concomitant]

REACTIONS (4)
  - BLOOD PRESSURE DIASTOLIC INCREASED [None]
  - CONDITION AGGRAVATED [None]
  - DRY MOUTH [None]
  - OEDEMA PERIPHERAL [None]
